FAERS Safety Report 6746112-9 (Version None)
Quarter: 2010Q2

REPORT INFORMATION
  Report Type: 
  Country: None (occurrence: None)
  Receive Date: 20100528
  Receipt Date: 20100315
  Transmission Date: 20101027
  Serious: No
  Sender: FDA-Public Use
  Company Number: US-ASTRAZENECA-2010SE11719

PATIENT
  Age: 73 Year
  Sex: Female

DRUGS (18)
  1. PRILOSEC [Suspect]
     Route: 048
     Dates: end: 20100201
  2. PRILOSEC OTC [Suspect]
     Route: 048
     Dates: start: 20091201, end: 20100201
  3. PLAVIX [Suspect]
     Indication: CORONARY ARTERIAL STENT INSERTION
     Route: 048
     Dates: start: 20091220
  4. PLAVIX [Suspect]
     Indication: MYOCARDIAL INFARCTION
     Route: 048
     Dates: start: 20091220
  5. GAVISCON /00237601/ [Concomitant]
     Dosage: UNKNOWN
  6. HUMALOG [Concomitant]
     Dosage: UNKNOWN
     Dates: start: 19850101
  7. LANTUS /01483501/ [Concomitant]
     Dosage: UNKNOWN
  8. TRICOR [Concomitant]
     Dosage: UNKNOWN
  9. VYTORIN [Concomitant]
     Dosage: UNKNOWN
  10. RAMIPRIL [Concomitant]
     Dosage: UNKNOWN
     Dates: start: 20000101
  11. FUROSEMIDE [Concomitant]
     Dosage: UNKNOWN
     Dates: start: 20000101
  12. CARVEDILOL [Concomitant]
     Dosage: UNKNOWN
     Dates: start: 20091201
  13. MESTINON [Concomitant]
     Dosage: UNKNOWN
     Dates: start: 19950101
  14. ASPIRIN [Concomitant]
     Dosage: UNKNOWN
     Dates: start: 19900101
  15. CALCIUM CARBONATE [Concomitant]
     Dosage: UNKNOWN
  16. LORAZEPAM [Concomitant]
     Dosage: UNKNOWN
     Dates: start: 20050101
  17. MULTI-VITAMINS [Concomitant]
     Dosage: UNKNOWN
  18. ALL OTHER THERAPEUTIC PRODUCTS [Concomitant]
     Dosage: UNKNOWN
     Dates: start: 20090101

REACTIONS (5)
  - FLATULENCE [None]
  - GASTRIC DISORDER [None]
  - INAPPROPRIATE SCHEDULE OF DRUG ADMINISTRATION [None]
  - INCORRECT DOSE ADMINISTERED [None]
  - NAUSEA [None]
